FAERS Safety Report 6441790-6 (Version None)
Quarter: 2009Q4

REPORT INFORMATION
  Report Type: 
  Country: None (occurrence: None)
  Receive Date: 20091112
  Receipt Date: 20091103
  Transmission Date: 20100525
  Serious: Yes (Hospitalization, Congenital Anomaly)
  Sender: FDA-Public Use
  Company Number: 2009US003925

PATIENT
  Age: 5 Year
  Sex: Female
  Weight: 24.5 kg

DRUGS (1)
  1. TACROLIMUS [Suspect]
     Indication: DERMATITIS ATOPIC
     Dosage: 0.03% UID/QD TOPICAL
     Route: 061
     Dates: start: 20081013

REACTIONS (4)
  - ABSCESS [None]
  - THYROGLOSSAL CYST [None]
  - THYROIDECTOMY [None]
  - WOUND DEHISCENCE [None]
